FAERS Safety Report 19250597 (Version 1)
Quarter: 2021Q2

REPORT INFORMATION
  Report Type: Report from Study
  Country: None (occurrence: US)
  Receive Date: 20210513
  Receipt Date: 20210513
  Transmission Date: 20210717
  Serious: Yes (Hospitalization, Other)
  Sender: FDA-Public Use
  Company Number: US-ABBVIE-21K-163-3890509-00

PATIENT
  Age: 57 Year
  Sex: Female
  Weight: 61.29 kg

DRUGS (5)
  1. HUMIRA [Suspect]
     Active Substance: ADALIMUMAB
     Indication: UVEITIS
  2. DEMEROL [Concomitant]
     Active Substance: MEPERIDINE HYDROCHLORIDE
     Indication: PRODUCT USED FOR UNKNOWN INDICATION
  3. OTEZLA [Concomitant]
     Active Substance: APREMILAST
     Indication: PRODUCT USED FOR UNKNOWN INDICATION
  4. HUMIRA [Suspect]
     Active Substance: ADALIMUMAB
     Indication: PSORIATIC ARTHROPATHY
     Dosage: CITRATE FREE
     Route: 058
  5. PREDNISONE. [Concomitant]
     Active Substance: PREDNISONE
     Indication: PRODUCT USED FOR UNKNOWN INDICATION

REACTIONS (15)
  - SARS-CoV-2 test positive [Unknown]
  - Peripheral swelling [Unknown]
  - Diarrhoea [Unknown]
  - Obstructive airways disorder [Unknown]
  - Arthralgia [Recovered/Resolved]
  - Pneumonitis [Unknown]
  - Hospitalisation [Unknown]
  - Joint swelling [Unknown]
  - Body height decreased [Unknown]
  - Dizziness [Unknown]
  - Ageusia [Unknown]
  - Pain [Unknown]
  - Swelling [Unknown]
  - Sinusitis [Unknown]
  - Weight decreased [Unknown]

NARRATIVE: CASE EVENT DATE: 20201021
